FAERS Safety Report 6601562-6 (Version None)
Quarter: 2010Q1

REPORT INFORMATION
  Report Type: 
  Country: None (occurrence: None)
  Receive Date: 20100225
  Receipt Date: 20100217
  Transmission Date: 20100710
  Serious: Yes (Hospitalization)
  Sender: FDA-Public Use
  Company Number: JP-ROCHE-576461

PATIENT
  Sex: Female

DRUGS (27)
  1. TOCILIZUMAB [Suspect]
     Indication: JUVENILE ARTHRITIS
     Route: 041
     Dates: start: 20070731
  2. TOCILIZUMAB [Suspect]
     Route: 041
     Dates: start: 20080605, end: 20080605
  3. TOCILIZUMAB [Suspect]
     Route: 041
     Dates: start: 20080716, end: 20080716
  4. TOCILIZUMAB [Suspect]
     Route: 041
     Dates: start: 20080730, end: 20080730
  5. TOCILIZUMAB [Suspect]
     Route: 041
     Dates: start: 20080812, end: 20081008
  6. TOCILIZUMAB [Suspect]
     Route: 041
     Dates: start: 20081023, end: 20081119
  7. TOCILIZUMAB [Suspect]
     Route: 041
     Dates: start: 20081202, end: 20081202
  8. TOCILIZUMAB [Suspect]
     Route: 041
     Dates: start: 20081211, end: 20081224
  9. TOCILIZUMAB [Suspect]
     Route: 041
     Dates: start: 20090108, end: 20090122
  10. TOCILIZUMAB [Suspect]
     Route: 041
     Dates: start: 20090204, end: 20090305
  11. TOCILIZUMAB [Suspect]
     Route: 041
     Dates: start: 20090330, end: 20090430
  12. TOCILIZUMAB [Suspect]
     Route: 041
     Dates: start: 20090514
  13. PREDNISOLONE [Suspect]
     Indication: JUVENILE ARTHRITIS
     Dosage: FORM : PERORAL AGENT
     Route: 048
     Dates: end: 20080910
  14. PREDNISOLONE [Suspect]
     Route: 048
     Dates: start: 20080911, end: 20090305
  15. PREDNISOLONE [Suspect]
     Route: 048
     Dates: start: 20090306
  16. ULCERMIN [Concomitant]
     Dosage: FORM: MINUTE GRAIN
     Route: 048
     Dates: end: 20080924
  17. ULCERMIN [Concomitant]
     Dosage: FORM : FINE GRANULE
     Route: 048
     Dates: start: 20080925
  18. ALFAROL [Concomitant]
     Dosage: DRUG : ALFAROL SOLUTION, FORM: PERORAL LIQUID PREPARATION
     Route: 048
     Dates: end: 20080812
  19. AFTACH [Concomitant]
     Dosage: ROUTE : OROPHARINGEAL.
     Route: 050
  20. EXPECTORANT [Concomitant]
     Dosage: FORMULATION: ORAL FORMULATION (NOT OTHERWISE SPECIFIED)
     Route: 048
     Dates: start: 20080526, end: 20080610
  21. ANTIBIOTIC NOS [Concomitant]
     Dosage: FORM: ORAL FORMULATION (NOT OTRHERWISE SPECIFIED) NOTE: UNCERTAINITY  NOTE: UNCERTAINTY
     Route: 048
     Dates: start: 20080526, end: 20080610
  22. MEIACT [Concomitant]
     Dosage: FORM: MINUTE GRAIN
     Route: 048
     Dates: start: 20080716, end: 20080723
  23. ANDERM [Concomitant]
     Dosage: DOSAGE ADJUSTED; DOSE FORM: OINTMENT AND CREAM (PROPER QUANTITY)
     Route: 061
     Dates: start: 20080605
  24. GENTAMICIN [Concomitant]
     Dosage: DOSAGE ADJUSTED (PROPER QUANTITY), FORM: OINTMENT AND CREAM
     Route: 061
     Dates: start: 20080605
  25. AZUNOL [Concomitant]
     Dosage: DOSAGE ADJUSTED (PROPER QUANTITY)
     Route: 061
     Dates: start: 20080712
  26. ALFAROL [Concomitant]
     Dosage: FORM : POWDERED MEDICINE
     Route: 048
     Dates: start: 20080813
  27. MEIACT [Concomitant]
     Dosage: FORM : MINUTE GRAIN
     Route: 048
     Dates: start: 20090327, end: 20090404

REACTIONS (5)
  - ABSCESS NECK [None]
  - GASTROENTERITIS [None]
  - LYMPHADENITIS [None]
  - PHARYNGITIS [None]
  - UPPER RESPIRATORY TRACT INFLAMMATION [None]
